FAERS Safety Report 4315373-8 (Version None)
Quarter: 2004Q1

REPORT INFORMATION
  Report Type: 
  Country: None (occurrence: None)
  Receive Date: 20040309
  Receipt Date: 20040223
  Transmission Date: 20041129
  Serious: Yes (Other)
  Sender: FDA-Public Use
  Company Number: GB-SHR-03-015931

PATIENT
  Age: 38 Year
  Sex: Female

DRUGS (3)
  1. MIRENA [Suspect]
     Indication: MENORRHAGIA
     Dosage: 20 UG CONT INTRA-UTERINE
     Route: 015
  2. MESALAZINE [Concomitant]
  3. LOPERAMIDE HCL [Concomitant]

REACTIONS (5)
  - CONDITION AGGRAVATED [None]
  - CROHN'S DISEASE [None]
  - OEDEMA PERIPHERAL [None]
  - PELVIC PAIN [None]
  - VAGINAL HAEMORRHAGE [None]
